FAERS Safety Report 11665463 (Version 1)
Quarter: 2015Q4

REPORT INFORMATION
  Report Type: Spontaneous
  Country: DE (occurrence: DE)
  Receive Date: 20151027
  Receipt Date: 20151027
  Transmission Date: 20160304
  Serious: Yes (Other)
  Sender: FDA-Public Use
  Company Number: DE-PFIZER INC-2015349224

PATIENT
  Age: 70 Year
  Sex: Female

DRUGS (1)
  1. XALKORI [Suspect]
     Active Substance: CRIZOTINIB
     Indication: NON-SMALL CELL LUNG CANCER
     Dosage: 250 MG, 2X/DAY
     Dates: start: 201508

REACTIONS (5)
  - Photopsia [Unknown]
  - Dysgeusia [Unknown]
  - Fatigue [Unknown]
  - Product use issue [Unknown]
  - Stupor [Unknown]

NARRATIVE: CASE EVENT DATE: 2015
